FAERS Safety Report 9826220 (Version 1)
Quarter: 2013Q4

REPORT INFORMATION
  Report Type: Spontaneous
  Country: US (occurrence: None)
  Receive Date: 20131223
  Receipt Date: 20131223
  Transmission Date: 20140711
  Serious: Yes (Other)
  Sender: FDA-Public Use
  Company Number: 221472LEO

PATIENT
  Age: 76 Year
  Sex: Male

DRUGS (8)
  1. PICATO [Suspect]
     Indication: ACTINIC KERATOSIS
     Dosage: (1 IN 1 D), TOPICAL
     Route: 061
     Dates: start: 20130429
  2. SIMVASTATI N (SIMVASTATIN) [Concomitant]
  3. TRICOR (ADENOSINE) [Concomitant]
  4. GLYBURIDE (GLIBENCLAMIDE) [Concomitant]
  5. ALLOPURINOL (ALLOPURINOL) [Concomitant]
  6. DIOVAN (VALSARTAN) [Concomitant]
  7. TRAMADOL (TRAMADOL) [Concomitant]
  8. LANSOPRAZOLE (LANSOPRAZOLE) [Concomitant]

REACTIONS (2)
  - Application site erythema [None]
  - Application site pain [None]
